FAERS Safety Report 6748206-0 (Version None)
Quarter: 2010Q2

REPORT INFORMATION
  Report Type: 
  Country: None (occurrence: None)
  Receive Date: 20100601
  Receipt Date: 20100517
  Transmission Date: 20101027
  Serious: Yes (Other)
  Sender: FDA-Public Use
  Company Number: US-ASTRAZENECA-2010SE20564

PATIENT
  Age: 20695 Day
  Sex: Male
  Weight: 72.1 kg

DRUGS (4)
  1. SEROQUEL [Suspect]
     Indication: SLEEP DISORDER
     Dosage: 50-200MG
     Route: 048
     Dates: start: 20080822
  2. LYRICA [Concomitant]
     Dosage: 75-600MG
     Dates: start: 20080815
  3. BACLOFEN [Concomitant]
     Dates: start: 20080827, end: 20080917
  4. CYMBALTA [Concomitant]
     Dates: start: 20080917

REACTIONS (2)
  - DIABETES MELLITUS [None]
  - NEUROPATHY PERIPHERAL [None]
